FAERS Safety Report 9108583 (Version 4)
Quarter: 2013Q2

REPORT INFORMATION
  Report Type: Spontaneous
  Country: US (occurrence: US)
  Receive Date: 20130222
  Receipt Date: 20130603
  Transmission Date: 20140414
  Serious: No
  Sender: FDA-Public Use
  Company Number: US-009507513-1302USA009326

PATIENT
  Age: 50 Year
  Sex: Female

DRUGS (2)
  1. PEG-INTRON [Suspect]
     Indication: HEPATITIS C
     Dosage: 120 MICROGRAM, QW, REDIPEN
     Dates: start: 20130201, end: 20130301
  2. REBETOL [Suspect]
     Indication: HEPATITIS C
     Dosage: UNK
     Route: 048
     Dates: start: 20130201, end: 20130301

REACTIONS (19)
  - Bone pain [Unknown]
  - Oropharyngeal pain [Unknown]
  - Tongue discolouration [Unknown]
  - Drug dose omission [Unknown]
  - Throat tightness [Unknown]
  - Mouth ulceration [Unknown]
  - Gastrointestinal disorder [Unknown]
  - Pain [Unknown]
  - Insomnia [Unknown]
  - Anaemia [Unknown]
  - Haemoglobin decreased [Unknown]
  - Haemoglobin decreased [Unknown]
  - Rash [Unknown]
  - Asthenia [Unknown]
  - Malaise [Unknown]
  - Mouth ulceration [Unknown]
  - Haemoglobin decreased [Unknown]
  - Anaemia [Unknown]
  - Malaise [Unknown]
